FAERS Safety Report 6457661-5 (Version None)
Quarter: 2009Q4

REPORT INFORMATION
  Report Type: 
  Country: None (occurrence: None)
  Receive Date: 20091024
  Receipt Date: 20091109
  Transmission Date: 20100525
  Serious: Yes (Death, Hospitalization)
  Sender: FDA-Public Use
  Company Number: 2009AC000194

PATIENT
  Age: 76 Year
  Sex: Female

DRUGS (18)
  1. DIGOXIN [Suspect]
     Dates: end: 20070101
  2. PLENDIL [Concomitant]
  3. ZOCOR [Concomitant]
  4. TOPROL-XL [Concomitant]
  5. LASIX [Concomitant]
  6. COREG [Concomitant]
  7. COUMADIN [Concomitant]
  8. HYDRALAZINE HCL [Concomitant]
  9. METOPROLOL [Concomitant]
  10. ASPIRIN [Concomitant]
  11. PROZAC [Concomitant]
  12. LIPITOR [Concomitant]
  13. HYDROCODONE [Concomitant]
  14. TYLENOL (CAPLET) [Concomitant]
  15. PRED-FORTE GTTS [Concomitant]
  16. COUMADIN [Concomitant]
  17. LISINOPRIL [Concomitant]
  18. HYDRALAZINE HCL [Concomitant]

REACTIONS (23)
  - ANAEMIA [None]
  - AORTIC STENOSIS [None]
  - AORTIC VALVE STENOSIS [None]
  - ATRIAL FIBRILLATION [None]
  - BRONCHITIS [None]
  - CARDIAC FAILURE CONGESTIVE [None]
  - CARDIAC MURMUR [None]
  - CATARACT [None]
  - CEREBROVASCULAR ACCIDENT [None]
  - DYSPNOEA [None]
  - HYPERCALCAEMIA [None]
  - HYPERTENSION [None]
  - HYPOPARATHYROIDISM [None]
  - HYPOXIA [None]
  - IMMOBILE [None]
  - INTERMITTENT CLAUDICATION [None]
  - MITRAL VALVE STENOSIS [None]
  - NAUSEA [None]
  - RENAL FAILURE [None]
  - RHEUMATIC HEART DISEASE [None]
  - UNRESPONSIVE TO STIMULI [None]
  - WEIGHT INCREASED [None]
  - WHITE BLOOD CELL COUNT INCREASED [None]
